FAERS Safety Report 5671204-5 (Version None)
Quarter: 2008Q1

REPORT INFORMATION
  Report Type: 
  Country: None (occurrence: None)
  Receive Date: 20080313
  Receipt Date: 20080303
  Transmission Date: 20080703
  Serious: Yes (Hospitalization, Other)
  Sender: FDA-Public Use
  Company Number: 45869

PATIENT
  Age: 45 Year
  Sex: Female

DRUGS (1)
  1. CISPLATIN [Suspect]
     Indication: CERVIX CARCINOMA
     Dosage: 240 MG/M2 CUMULATIVE DOSE

REACTIONS (3)
  - CONVULSION [None]
  - HYPOMAGNESAEMIA [None]
  - LEUKOENCEPHALOPATHY [None]
